FAERS Safety Report 5369706-4 (Version None)
Quarter: 2007Q2

REPORT INFORMATION
  Report Type: 
  Country: None (occurrence: None)
  Receive Date: 20070625
  Receipt Date: 20070611
  Transmission Date: 20071010
  Serious: Yes (Hospitalization)
  Sender: FDA-Public Use
  Company Number: DE-SHR-DE-2007-019867

PATIENT
  Age: 55 Year
  Sex: Male

DRUGS (2)
  1. BETASERON [Suspect]
     Indication: MULTIPLE SCLEROSIS
     Dosage: 8 MIU, 1X/WEEK
     Route: 058
     Dates: start: 20050510, end: 20070514
  2. ACETYLSALICYLIC ACID SRT [Concomitant]
     Dosage: 100 MG/D, 1X/DAY
     Route: 048

REACTIONS (3)
  - ABASIA [None]
  - INJECTION SITE NECROSIS [None]
  - SUPERINFECTION [None]
